FAERS Safety Report 4313383-8 (Version None)
Quarter: 2004Q1

REPORT INFORMATION
  Report Type: 
  Country: None (occurrence: None)
  Receive Date: 20040304
  Receipt Date: 20040218
  Transmission Date: 20041129
  Serious: Yes (Death)
  Sender: FDA-Public Use
  Company Number: 2004-DE-00782GD

PATIENT
  Age: 3 Month
  Sex: Male

DRUGS (3)
  1. CYCLOPHOSPHAMIDE [Suspect]
     Indication: STEM CELL TRANSPLANT
     Dosage: 50 MG/KG ONCE DAILY (NR), IV
     Route: 042
  2. BUSULPHAN (BUSULFAN) [Suspect]
     Indication: STEM CELL TRANSPLANT
     Dosage: 5 MG/KG (NR), PO
     Route: 048
  3. STEROIDS [Concomitant]

REACTIONS (7)
  - COAGULOPATHY [None]
  - HEPATIC VEIN OCCLUSION [None]
  - IDIOSYNCRATIC DRUG REACTION [None]
  - PULMONARY HAEMORRHAGE [None]
  - PULMONARY HYPERTENSION [None]
  - VENOOCCLUSIVE DISEASE [None]
  - VENTRICULAR HYPERTROPHY [None]
